FAERS Safety Report 6080265-3 (Version None)
Quarter: 2009Q1

REPORT INFORMATION
  Report Type: 
  Country: None (occurrence: None)
  Receive Date: 20090217
  Receipt Date: 20090203
  Transmission Date: 20090719
  Serious: Yes (Other)
  Sender: FDA-Public Use
  Company Number: ES-JNJFOC-20090201616

PATIENT
  Sex: Male

DRUGS (2)
  1. REMICADE [Suspect]
     Indication: BEHCET'S SYNDROME
     Route: 042
  2. CORTICOID [Concomitant]

REACTIONS (3)
  - CHOLECYSTECTOMY [None]
  - COLON CANCER [None]
  - COLONIC STENOSIS [None]
